FAERS Safety Report 7438513-0 (Version None)
Quarter: 2011Q2

REPORT INFORMATION
  Report Type: 
  Country: None (occurrence: None)
  Receive Date: 20110418
  Receipt Date: 20110401
  Transmission Date: 20111010
  Serious: Yes (Death, Hospitalization)
  Sender: FDA-Public Use
  Company Number: DSA_44112_2010

PATIENT
  Sex: Male

DRUGS (18)
  1. NORVASC [Concomitant]
  2. LASIX [Concomitant]
  3. CLOPIDOGREL BISULFATE [Concomitant]
  4. METOLAZONE [Concomitant]
  5. APIXABAN [Suspect]
     Indication: THROMBOSIS PROPHYLAXIS
     Dosage: (5 MG QD ORAL)
     Route: 048
     Dates: start: 20090905, end: 20091125
  6. HUMALOG [Concomitant]
  7. FUROSEMIDE [Concomitant]
  8. ENALAPRIL MALEATE [Suspect]
     Indication: PRODUCT USED FOR UNKNOWN INDICATION
     Dosage: (DF ORAL)
     Route: 048
  9. ASPIRIN [Concomitant]
  10. BISOPROLOL FUMARATE [Concomitant]
  11. AMLODIPINE BESYLATE [Concomitant]
  12. PLAVIX [Concomitant]
  13. ATORVASTATIN CALCIUM [Concomitant]
  14. METFORMIN [Concomitant]
  15. AMITRIPTYLINE HCL [Concomitant]
  16. ENALAPRIL MALEATE [Concomitant]
  17. PANTOPRAZOLE [Concomitant]
  18. LANTUS [Concomitant]

REACTIONS (5)
  - MYOCARDIAL INFARCTION [None]
  - OEDEMA MOUTH [None]
  - ANGIOEDEMA [None]
  - SWOLLEN TONGUE [None]
  - VENTRICULAR TACHYCARDIA [None]
